FAERS Safety Report 9003546 (Version 2)
Quarter: 2013Q1

REPORT INFORMATION
  Report Type: Spontaneous
  Country: US (occurrence: US)
  Receive Date: 20130108
  Receipt Date: 20130129
  Transmission Date: 20140127
  Serious: No
  Sender: FDA-Public Use
  Company Number: US-ROXANE LABORATORIES, INC.-2013-RO-00017RO

PATIENT
  Sex: Male
  Weight: 66 kg

DRUGS (1)
  1. METHADONE [Suspect]
     Indication: PAIN

REACTIONS (1)
  - Nausea [Recovered/Resolved]
